FAERS Safety Report 6355592-2 (Version None)
Quarter: 2009Q3

REPORT INFORMATION
  Report Type: 
  Country: None (occurrence: None)
  Receive Date: 20090910
  Receipt Date: 20090908
  Transmission Date: 20100115
  Serious: Yes (Hospitalization)
  Sender: FDA-Public Use
  Company Number: 1000008720

PATIENT
  Age: 45 Year
  Sex: Female

DRUGS (1)
  1. LEVOTHROID [Suspect]
     Indication: HYPOTHYROIDISM
     Dosage: 25 MCG (25 MCG, 1 IN 1 D), ORAL
     Route: 048
     Dates: start: 20010101, end: 20010101

REACTIONS (1)
  - HEART RATE INCREASED [None]
